FAERS Safety Report 4496984-6 (Version None)
Quarter: 2004Q4

REPORT INFORMATION
  Report Type: 
  Country: None (occurrence: None)
  Receive Date: 20040928
  Receipt Date: 20040726
  Transmission Date: 20050328
  Serious: No
  Sender: FDA-Public Use
  Company Number: 04P-163-0268074-00

PATIENT
  Age: 82 Year
  Sex: Female

DRUGS (7)
  1. HUMIRA [Suspect]
     Indication: RHEUMATOID ARTHRITIS
     Dosage: 40 MG, 1 IN 2 WK, SUBCUTANEOUS
     Route: 058
     Dates: start: 20031001, end: 20031201
  2. HUMIRA [Suspect]
     Indication: RHEUMATOID ARTHRITIS
     Dosage: 40 MG, 1 IN 2 WK, SUBCUTANEOUS
     Route: 058
     Dates: start: 20040218, end: 20040426
  3. WARFARIN SODIUM [Concomitant]
  4. ATENOLOL [Concomitant]
  5. LEVOTHYROXINE SODIUM [Concomitant]
  6. FLURAZEPAM HCL [Concomitant]
  7. CYCLOBENZAPRINE HYDROCHLORIDE [Concomitant]

REACTIONS (2)
  - INJECTION SITE ERYTHEMA [None]
  - OEDEMA PERIPHERAL [None]
